FAERS Safety Report 8117974-8 (Version None)
Quarter: 2012Q1

REPORT INFORMATION
  Report Type: 
  Country: None (occurrence: None)
  Receive Date: 20120202
  Receipt Date: 20120117
  Transmission Date: 20120608
  Serious: Yes (Other)
  Sender: FDA-Public Use
  Company Number: 2011RR-50821

PATIENT
  Age: 18 Year
  Sex: Male

DRUGS (6)
  1. PYRAZINAMIDE [Suspect]
     Indication: PULMONARY TUBERCULOSIS
  2. OFLOXACIN [Suspect]
     Indication: PULMONARY TUBERCULOSIS
  3. ETHIONAMIDE (ETHIONAMIDE) [Suspect]
     Indication: PULMONARY TUBERCULOSIS
  4. KANAMYCIN [Suspect]
     Indication: PULMONARY TUBERCULOSIS
  5. CYCLOSERINE [Suspect]
     Indication: PULMONARY TUBERCULOSIS
  6. ETHAMBUTOL HYDROCHLORIDE [Suspect]
     Indication: PULMONARY TUBERCULOSIS

REACTIONS (15)
  - PSYCHOTIC DISORDER [None]
  - REFUSAL OF TREATMENT BY PATIENT [None]
  - PSYCHOMOTOR RETARDATION [None]
  - DELUSION OF REFERENCE [None]
  - PALLOR [None]
  - HALLUCINATIONS, MIXED [None]
  - FEAR [None]
  - IMPAIRED SELF-CARE [None]
  - MALNUTRITION [None]
  - PERSECUTORY DELUSION [None]
  - JUDGEMENT IMPAIRED [None]
  - ANXIETY [None]
  - SOCIAL AVOIDANT BEHAVIOUR [None]
  - DECREASED APPETITE [None]
  - DELUSIONAL DISORDER, MIXED TYPE [None]
